FAERS Safety Report 10664315 (Version 2)
Quarter: 2016Q4

REPORT INFORMATION
  Report Type: Spontaneous
  Country: CA (occurrence: CA)
  Receive Date: 20141219
  Receipt Date: 20161003
  Transmission Date: 20170206
  Serious: Yes (Hospitalization, Other)
  Sender: FDA-Public Use
  Company Number: CA-RANBAXY-2014US-90463

PATIENT
  Age: 55 Year
  Sex: Female

DRUGS (11)
  1. HYDROMORPHONE [Suspect]
     Active Substance: HYDROMORPHONE
     Dosage: TWO BREAKTHROUGHS IN 24 H
     Route: 058
  2. HYDROMORPHONE [Suspect]
     Active Substance: HYDROMORPHONE
     Indication: PELVIC PAIN
     Dosage: 12.5 MG/H
     Route: 058
  3. METHADONE [Suspect]
     Active Substance: METHADONE HYDROCHLORIDE
     Dosage: 15 MG, TID
     Route: 065
  4. SUFENTANIL [Suspect]
     Active Substance: SUFENTANIL
     Dosage: 3 BREAKTHROUGHS PER DAY
     Route: 060
  5. GABAPENTIN. [Suspect]
     Active Substance: GABAPENTIN
     Indication: PELVIC PAIN
     Dosage: 40 MG, TID
     Route: 048
  6. HYDROMORPHONE [Suspect]
     Active Substance: HYDROMORPHONE
     Indication: PELVIC PAIN
     Dosage: 15 MG (EIGHT BREAKTHROUGHS PER 24 H)
     Route: 058
  7. HYDROMORPHONE [Suspect]
     Active Substance: HYDROMORPHONE
     Dosage: 1.7 BREAKTHROUGHS IN 24 H
     Route: 058
  8. METHADONE [Suspect]
     Active Substance: METHADONE HYDROCHLORIDE
     Indication: PELVIC PAIN
     Dosage: 12 MG, TID
     Route: 058
  9. KETAMINE [Suspect]
     Active Substance: KETAMINE
     Indication: PELVIC PAIN
     Dosage: 500 MG, DAILY (AS 21 MG/H)
     Route: 058
  10. SUFENTANIL [Suspect]
     Active Substance: SUFENTANIL
     Dosage: 0.9 BREAKTHROUGHS PER DAY
     Route: 060
  11. SUFENTANIL [Suspect]
     Active Substance: SUFENTANIL
     Indication: PELVIC PAIN
     Dosage: 75 MCG, (11 BREAKTHROUGHS PER DAY)
     Route: 060

REACTIONS (2)
  - Delirium [Recovered/Resolved]
  - Drug ineffective [Recovering/Resolving]
